FAERS Safety Report 5086971-1 (Version None)
Quarter: 2006Q3

REPORT INFORMATION
  Report Type: 
  Country: None (occurrence: None)
  Receive Date: 20060818
  Receipt Date: 20060814
  Transmission Date: 20061208
  Serious: Yes (Other)
  Sender: FDA-Public Use
  Company Number: S06-USA-00900-01

PATIENT
  Age: 23 Year
  Sex: Female

DRUGS (8)
  1. CELEXA [Suspect]
     Indication: DEPRESSION
     Dosage: 20 MG QD PO
     Route: 048
     Dates: start: 20060214, end: 20060315
  2. CELEXA [Suspect]
     Indication: GENERALISED ANXIETY DISORDER
     Dosage: 20 MG QD PO
     Route: 048
     Dates: start: 20060214, end: 20060315
  3. CELEXA [Suspect]
     Indication: DEPRESSION
     Dosage: 10 MG QD PO
     Route: 048
     Dates: start: 20060316, end: 20060319
  4. CELEXA [Suspect]
     Indication: GENERALISED ANXIETY DISORDER
     Dosage: 10 MG QD PO
     Route: 048
     Dates: start: 20060316, end: 20060319
  5. CELEXA [Suspect]
     Indication: DEPRESSION
     Dosage: 5 MG QD PO
     Route: 048
     Dates: start: 20060320, end: 20060322
  6. CELEXA [Suspect]
     Indication: GENERALISED ANXIETY DISORDER
     Dosage: 5 MG QD PO
     Route: 048
     Dates: start: 20060320, end: 20060322
  7. NUVARING [Concomitant]
  8. KLONOPIN [Concomitant]

REACTIONS (11)
  - BIPOLAR DISORDER [None]
  - DISTURBANCE IN ATTENTION [None]
  - HOSTILITY [None]
  - IMPULSIVE BEHAVIOUR [None]
  - INSOMNIA [None]
  - MANIA [None]
  - NAUSEA [None]
  - PARAESTHESIA [None]
  - SELF-INJURIOUS IDEATION [None]
  - SKIN LACERATION [None]
  - SUICIDAL IDEATION [None]
